FAERS Safety Report 19800885 (Version 1)
Quarter: 2021Q3

REPORT INFORMATION
  Report Type: Spontaneous
  Country: US (occurrence: US)
  Receive Date: 20210907
  Receipt Date: 20210907
  Transmission Date: 20211014
  Serious: No
  Sender: FDA-Public Use
  Company Number: US-LUPIN PHARMACEUTICALS INC.-2021-16366

PATIENT
  Age: 26 Year
  Sex: Male

DRUGS (5)
  1. PHENELZINE [Suspect]
     Active Substance: PHENELZINE
     Dosage: 90 MILLIGRAM, QD (IN TWO DIVIDED DOSES.)
     Route: 065
  2. SERTRALINE [Suspect]
     Active Substance: SERTRALINE HYDROCHLORIDE
     Indication: OBSESSIVE-COMPULSIVE DISORDER
     Dosage: 200 MILLIGRAM
     Route: 065
  3. PHENELZINE [Suspect]
     Active Substance: PHENELZINE
     Indication: OBSESSIVE-COMPULSIVE DISORDER
     Dosage: 15 MILLIGRAM, BID
     Route: 065
  4. MEMANTINE. [Suspect]
     Active Substance: MEMANTINE
     Indication: OBSESSIVE-COMPULSIVE DISORDER
     Dosage: 20 MILLIGRAM
     Route: 065
  5. CITALOPRAM [Suspect]
     Active Substance: CITALOPRAM HYDROBROMIDE
     Indication: OBSESSIVE-COMPULSIVE DISORDER
     Dosage: 40 MILLIGRAM
     Route: 065

REACTIONS (5)
  - Nausea [Recovered/Resolved]
  - Dry mouth [Unknown]
  - Diarrhoea [Recovered/Resolved]
  - Drug resistance [Unknown]
  - Off label use [Unknown]
